FAERS Safety Report 24660362 (Version 1)
Quarter: 2024Q4

REPORT INFORMATION
  Report Type: Report from Study
  Country: US (occurrence: US)
  Receive Date: 20241125
  Receipt Date: 20241125
  Transmission Date: 20250115
  Serious: Yes (Hospitalization, Other)
  Sender: TEVA
  Company Number: US-TEVA-VS-3267304

PATIENT
  Age: 50 Year
  Sex: Female

DRUGS (2)
  1. PREDNISONE [Suspect]
     Active Substance: PREDNISONE
     Indication: Product used for unknown indication
     Route: 065
  2. BRIUMVI [Suspect]
     Active Substance: UBLITUXIMAB-XIIY
     Indication: Multiple sclerosis
     Route: 042
     Dates: start: 20241014, end: 20241014

REACTIONS (10)
  - Multiple sclerosis [Unknown]
  - Infusion related reaction [Unknown]
  - Visual impairment [Unknown]
  - Photopsia [Unknown]
  - Middle ear effusion [Unknown]
  - Blindness unilateral [Unknown]
  - Swelling face [Unknown]
  - Anxiety [Unknown]
  - Hypertension [Unknown]
  - Headache [Unknown]

NARRATIVE: CASE EVENT DATE: 20241001
